FAERS Safety Report 9308608 (Version 1)
Quarter: 2013Q2

REPORT INFORMATION
  Report Type: Report from Study
  Country: PL (occurrence: PL)
  Receive Date: 20130524
  Receipt Date: 20130524
  Transmission Date: 20140414
  Serious: Yes (Hospitalization, Disabling)
  Sender: FDA-Public Use
  Company Number: PL-JNJFOC-20130509311

PATIENT
  Sex: Female

DRUGS (12)
  1. BLINDED; USTEKINUMA [Suspect]
     Indication: RHEUMATOID ARTHRITIS
     Route: 058
     Dates: start: 20130227, end: 20130327
  2. CNTO 1959 [Suspect]
     Indication: RHEUMATOID ARTHRITIS
     Route: 058
     Dates: start: 20130227, end: 20130327
  3. PLACEBO [Suspect]
     Indication: RHEUMATOID ARTHRITIS
     Route: 058
     Dates: start: 20130227, end: 20130327
  4. ACIDUM FOLICUM [Concomitant]
     Dates: start: 200905
  5. AMLOZEK [Concomitant]
     Dates: start: 2004
  6. TRITACE [Concomitant]
     Dates: start: 2004
  7. BISOCARD [Concomitant]
     Route: 048
     Dates: start: 2010
  8. MADOPAR [Concomitant]
     Route: 048
     Dates: start: 2009
  9. METHOTREXATE [Concomitant]
     Route: 048
     Dates: start: 20120822
  10. METHYLPREDNISOLONUM [Concomitant]
     Route: 048
     Dates: start: 20120822
  11. MELOXICAM [Concomitant]
     Route: 048
     Dates: start: 20120822
  12. ADAMON [Concomitant]
     Route: 048
     Dates: start: 201205

REACTIONS (1)
  - Cerebrovascular accident [Recovered/Resolved with Sequelae]
